FAERS Safety Report 17728230 (Version 1)
Quarter: 2020Q2

REPORT INFORMATION
  Report Type: Spontaneous
  Country: US (occurrence: US)
  Receive Date: 20200430
  Receipt Date: 20200430
  Transmission Date: 20200714
  Serious: Yes (Disabling, Other)
  Sender: FDA-Public Use
  Company Number: None

PATIENT
  Age: 35 Year
  Sex: Male
  Weight: 92.25 kg

DRUGS (11)
  1. OSTEOPATH TREATMENTS [Concomitant]
  2. ACETAMINOPHEN. [Concomitant]
     Active Substance: ACETAMINOPHEN
  3. EXTREME STRETCHING [Concomitant]
  4. RHODES PHARMA GENERIC OXYCODONE [Suspect]
     Active Substance: OXYCODONE HYDROCHLORIDE
     Indication: PHARYNGEAL OPERATION
     Dosage: ?          QUANTITY:120 TABLET(S);?
     Route: 048
  5. HEALTHY DIETS [Concomitant]
  6. T THERAPY [Concomitant]
  7. OXYCODONE [Concomitant]
     Active Substance: OXYCODONE
  8. GABAPENTIN. [Concomitant]
     Active Substance: GABAPENTIN
  9. PIG THYROID GLAND [Concomitant]
  10. MULTIVITAMINS [Concomitant]
     Active Substance: VITAMINS
  11. VITAMIN D [Concomitant]
     Active Substance: VITAMIN D NOS

REACTIONS (6)
  - Loss of personal independence in daily activities [None]
  - Pain [None]
  - Joint swelling [None]
  - Torticollis [None]
  - Erythema [None]
  - Thyroid disorder [None]

NARRATIVE: CASE EVENT DATE: 20200421
